FAERS Safety Report 4750213-4 (Version None)
Quarter: 2005Q3

REPORT INFORMATION
  Report Type: 
  Country: None (occurrence: None)
  Receive Date: 20050823
  Receipt Date: 20050610
  Transmission Date: 20060218
  Serious: Yes (Hospitalization, Other)
  Sender: FDA-Public Use
  Company Number: FR-ABBOTT-05P-056-0303201-00

PATIENT
  Age: 52 Year
  Sex: Male
  Weight: 69 kg

DRUGS (13)
  1. KALETRA [Suspect]
     Indication: HIV INFECTION
     Route: 048
     Dates: start: 20050523, end: 20050527
  2. NORVIR [Suspect]
     Indication: DRUG USE FOR UNKNOWN INDICATION
     Dates: start: 20050323, end: 20050523
  3. DIDANOSINE [Concomitant]
     Indication: HIV INFECTION
     Route: 048
     Dates: start: 20050523, end: 20050527
  4. DIDANOSINE [Concomitant]
     Dates: start: 20050616
  5. LAMIVUDINE [Concomitant]
     Indication: HIV INFECTION
     Route: 048
     Dates: start: 20050523, end: 20050527
  6. LAMIVUDINE [Concomitant]
     Dates: start: 20050616
  7. BISOPROLOL [Concomitant]
     Indication: DRUG USE FOR UNKNOWN INDICATION
  8. KARVEA HCT [Concomitant]
     Indication: DRUG USE FOR UNKNOWN INDICATION
  9. SODIUM POLYSTYRENE SULFONATE [Concomitant]
     Indication: DRUG USE FOR UNKNOWN INDICATION
  10. OMEPRAZOLE [Concomitant]
     Indication: DRUG USE FOR UNKNOWN INDICATION
  11. STAVUDINE [Concomitant]
     Indication: DRUG USE FOR UNKNOWN INDICATION
     Dates: start: 20050323, end: 20050523
  12. SAQUINAVIR [Concomitant]
     Indication: DRUG USE FOR UNKNOWN INDICATION
     Dates: start: 20050323, end: 20050523
  13. NELFINAVIR [Concomitant]
     Indication: HIV INFECTION
     Dates: start: 20050616

REACTIONS (8)
  - AGITATION [None]
  - CONJUNCTIVITIS [None]
  - CONVULSION [None]
  - KERATITIS [None]
  - RENAL FAILURE ACUTE [None]
  - STEVENS-JOHNSON SYNDROME [None]
  - TONGUE BITING [None]
  - URINARY INCONTINENCE [None]
